FAERS Safety Report 6095461-9 (Version None)
Quarter: 2009Q1

REPORT INFORMATION
  Report Type: 
  Country: None (occurrence: None)
  Receive Date: 20090227
  Receipt Date: 20080407
  Transmission Date: 20090719
  Serious: No
  Sender: FDA-Public Use
  Company Number: A0721368A

PATIENT
  Age: 61 Year
  Sex: Male

DRUGS (5)
  1. LAMICTAL [Suspect]
     Indication: BIPOLAR DISORDER
     Dosage: 50MG PER DAY
     Route: 048
     Dates: start: 20071101
  2. ISOSORBIDE [Concomitant]
  3. FISH OIL [Concomitant]
  4. NIACIN [Concomitant]
  5. VITAMIN D [Concomitant]

REACTIONS (3)
  - ECZEMA [None]
  - RASH [None]
  - RASH PAPULAR [None]
